FAERS Safety Report 20363069 (Version 1)
Quarter: 2022Q1

REPORT INFORMATION
  Report Type: Report from Study
  Country: HU (occurrence: HU)
  Receive Date: 20220121
  Receipt Date: 20220121
  Transmission Date: 20220423
  Serious: Yes (Death, Hospitalization)
  Sender: FDA-Public Use
  Company Number: HU-NOVARTISPH-NVSC2022HU006566

PATIENT
  Sex: Male

DRUGS (1)
  1. METFORMIN HYDROCHLORIDE\VILDAGLIPTIN [Suspect]
     Active Substance: METFORMIN HYDROCHLORIDE\VILDAGLIPTIN
     Indication: Diabetes mellitus
     Dosage: 2 DOSAGE FORM, QD
     Route: 065

REACTIONS (3)
  - Cardiac arrest [Fatal]
  - Cardiac disorder [Unknown]
  - Overweight [Unknown]
